FAERS Safety Report 18307558 (Version 1)
Quarter: 2020Q3

REPORT INFORMATION
  Report Type: Spontaneous
  Country: CN (occurrence: CN)
  Receive Date: 20200924
  Receipt Date: 20200924
  Transmission Date: 20201103
  Serious: Yes (Hospitalization)
  Sender: FDA-Public Use
  Company Number: CN-PFIZER INC-2020367059

PATIENT
  Age: 22 Year
  Sex: Male
  Weight: 90 kg

DRUGS (3)
  1. CYTOSAR [Suspect]
     Active Substance: CYTARABINE
     Indication: T-CELL TYPE ACUTE LEUKAEMIA
     Dosage: 75 MG, 2X/DAY
     Route: 023
     Dates: start: 20200417, end: 20200426
  2. ACLARUBICIN HYDROCHLORIDE [Suspect]
     Active Substance: ACLARUBICIN HYDROCHLORIDE
     Indication: T-CELL TYPE ACUTE LEUKAEMIA
     Dosage: 20 MG, 1X/DAY
     Route: 041
     Dates: start: 20200417, end: 20200426
  3. DACOGEN [Suspect]
     Active Substance: DECITABINE
     Indication: T-CELL TYPE ACUTE LEUKAEMIA
     Dosage: 10 MG, 1X/DAY
     Route: 041
     Dates: start: 20200416, end: 20200422

REACTIONS (1)
  - Blood bilirubin increased [Not Recovered/Not Resolved]

NARRATIVE: CASE EVENT DATE: 20200426
